FAERS Safety Report 6057086-0 (Version None)
Quarter: 2009Q1

REPORT INFORMATION
  Report Type: 
  Country: None (occurrence: None)
  Receive Date: 20090121
  Receipt Date: 20080505
  Transmission Date: 20090719
  Serious: Yes (Other)
  Sender: FDA-Public Use
  Company Number: HQWYE392922JUL05

PATIENT
  Age: 60 Year
  Sex: Female

DRUGS (9)
  1. PREMPRO [Suspect]
     Indication: HORMONE REPLACEMENT THERAPY
     Dosage: ORAL
     Route: 048
     Dates: start: 19891227, end: 20031013
  2. ESTRADIOL [Suspect]
  3. ESTRATEST [Suspect]
  4. MENEST [Suspect]
  5. NORETHINDRONE (NOREHISTERONE, ) [Suspect]
  6. PREFEST [Suspect]
  7. PREMARIN [Suspect]
  8. PROMETRIUM [Suspect]
  9. PROVERA [Suspect]

REACTIONS (1)
  - BREAST CANCER [None]
